FAERS Safety Report 4386313-0 (Version None)
Quarter: 2004Q2

REPORT INFORMATION
  Report Type: 
  Country: None (occurrence: None)
  Receive Date: 20040623
  Receipt Date: 20040610
  Transmission Date: 20050107
  Serious: Yes (Other)
  Sender: FDA-Public Use
  Company Number: 2004039093

PATIENT
  Age: 68 Year
  Sex: Male
  Weight: 83.4619 kg

DRUGS (10)
  1. LIPITOR [Suspect]
     Indication: BLOOD CHOLESTEROL INCREASED
     Dosage: ORAL
     Route: 048
     Dates: start: 19970101, end: 20040401
  2. TIKOSYN [Suspect]
     Indication: ARRHYTHMIA
     Dosage: ORAL
     Route: 048
     Dates: start: 20040601
  3. TIKOSYN [Suspect]
     Indication: ATRIAL FIBRILLATION
     Dosage: ORAL
     Route: 048
     Dates: start: 20040601
  4. TAMSULOSIN (TAMSULOSIN) [Suspect]
     Indication: PROSTATIC SPECIFIC ANTIGEN INCREASED
     Dates: start: 20030101
  5. ACETYLSALICYLIC ACID SRT [Concomitant]
  6. AMLODIPINE BESYLATE [Concomitant]
  7. CLOPIDOGREL BISULFATE [Concomitant]
  8. ESOMEPRAZOLE (ESOMEPRAZOLE) [Concomitant]
  9. CETIRIZINE HCL [Concomitant]
  10. NITROGLYCERIN [Concomitant]

REACTIONS (20)
  - ADVERSE EVENT [None]
  - ARRHYTHMIA [None]
  - ATRIAL FIBRILLATION [None]
  - BENIGN PROSTATIC HYPERPLASIA [None]
  - BLOOD GLUCOSE INCREASED [None]
  - CHEST PAIN [None]
  - CONDITION AGGRAVATED [None]
  - CORONARY ARTERY RESTENOSIS [None]
  - DIFFICULTY IN WALKING [None]
  - DIZZINESS [None]
  - HEADACHE [None]
  - HEART RATE INCREASED [None]
  - HEPATIC ENZYME INCREASED [None]
  - HIGH DENSITY LIPOPROTEIN DECREASED [None]
  - HYPERTENSION [None]
  - MYALGIA [None]
  - PROSTATIC SPECIFIC ANTIGEN INCREASED [None]
  - SCAR [None]
  - STENT OCCLUSION [None]
  - STENT PLACEMENT [None]
